FAERS Safety Report 21526471 (Version 3)
Quarter: 2024Q4

REPORT INFORMATION
  Report Type: Spontaneous
  Country: US (occurrence: US)
  Receive Date: 20221031
  Receipt Date: 20241106
  Transmission Date: 20250114
  Serious: No
  Sender: UCB
  Company Number: US-UCBSA-2022038393

PATIENT
  Age: 58 Year
  Sex: Female

DRUGS (8)
  1. LEVETIRACETAM [Suspect]
     Active Substance: LEVETIRACETAM
     Indication: Status epilepticus
     Dosage: 40 MILLIGRAM/KILOGRAM
  2. LEVETIRACETAM [Suspect]
     Active Substance: LEVETIRACETAM
     Indication: Off label use
     Dosage: 1500 MILLIGRAM TWICE DAILY
  3. LACOSAMIDE [Suspect]
     Active Substance: LACOSAMIDE
     Indication: Status epilepticus
     Dosage: 200 MILLIGRAM
  4. LACOSAMIDE [Suspect]
     Active Substance: LACOSAMIDE
     Indication: Off label use
     Dosage: 100 MILLIGRAM TWICE DAILY
  5. LORAZEPAM [Concomitant]
     Active Substance: LORAZEPAM
     Indication: Partial seizures with secondary generalisation
     Dosage: 4 MILLIGRAM
  6. FOSPHENYTOIN [Concomitant]
     Active Substance: FOSPHENYTOIN
     Indication: Partial seizures with secondary generalisation
     Dosage: 20 MILLIGRAM/KILOGRAM
  7. PHENYTOIN [Concomitant]
     Active Substance: PHENYTOIN
     Indication: Product used for unknown indication
     Dosage: 50 MILLIGRAM THREE TIMES A DAY
  8. PHENYTOIN [Concomitant]
     Active Substance: PHENYTOIN
     Dosage: 50 MILLIGRAM A WEEK

REACTIONS (1)
  - No adverse event [Unknown]
